FAERS Safety Report 15667633 (Version 1)
Quarter: 2018Q4

REPORT INFORMATION
  Report Type: Spontaneous
  Country: US (occurrence: US)
  Receive Date: 20181128
  Receipt Date: 20181128
  Transmission Date: 20190205
  Serious: Yes (Other)
  Sender: FDA-Public Use
  Company Number: US-MYLANLABS-2018M1087861

PATIENT
  Age: 8 Year
  Sex: Female

DRUGS (4)
  1. CLINDAMYCIN. [Suspect]
     Active Substance: CLINDAMYCIN
     Indication: STAPHYLOCOCCAL OSTEOMYELITIS
     Dosage: UNK
     Route: 048
  2. CEFAZOLIN [Suspect]
     Active Substance: CEFAZOLIN
     Indication: STAPHYLOCOCCAL OSTEOMYELITIS
     Route: 042
  3. CLINDAMYCIN. [Suspect]
     Active Substance: CLINDAMYCIN
     Dosage: 1/100TH FULL THERAPEUTIC DOSE
     Route: 048
  4. CLINDAMYCIN. [Suspect]
     Active Substance: CLINDAMYCIN
     Dosage: 1/10TH FULL THERAPEUTIC DOSE
     Route: 048

REACTIONS (5)
  - Peripheral swelling [Recovering/Resolving]
  - Vulvovaginal pruritus [Recovering/Resolving]
  - Urticaria [Recovering/Resolving]
  - Vulvovaginal swelling [Recovering/Resolving]
  - Type I hypersensitivity [Recovered/Resolved]
